FAERS Safety Report 5065963-2 (Version None)
Quarter: 2006Q3

REPORT INFORMATION
  Report Type: 
  Country: None (occurrence: None)
  Receive Date: 20060731
  Receipt Date: 20060720
  Transmission Date: 20061208
  Serious: Yes (Death)
  Sender: FDA-Public Use
  Company Number: MZ-BOEHRINGER INGELHEIM PHARMACEUTICALS, INC.-2006-DE-03850GD

PATIENT
  Sex: Female

DRUGS (3)
  1. TRIOMUNE [Suspect]
     Indication: HIV INFECTION
     Dosage: NEVIRAPINE 400 MG, LAMIVUDINE 300 MG, STAVUDINE 60 OR 80 MG
  2. TRIOMUNE [Suspect]
     Indication: HUMAN IMMUNODEFICIENCY VIRUS TRANSMISSION
  3. TRIOMUNE [Suspect]
     Indication: PROPHYLAXIS

REACTIONS (2)
  - DEATH [None]
  - DRUG EXPOSURE DURING PREGNANCY [None]
